FAERS Safety Report 13858480 (Version 2)
Quarter: 2017Q3

REPORT INFORMATION
  Report Type: Spontaneous
  Country: US (occurrence: US)
  Receive Date: 20170811
  Receipt Date: 20170811
  Transmission Date: 20171127
  Serious: No
  Sender: FDA-Public Use
  Company Number: US-GREER LABORATORIES, INC.-2024500

PATIENT
  Age: 66 Year
  Sex: Male
  Weight: 94.09 kg

DRUGS (10)
  1. STANDARDIZED CAT HAIR [Suspect]
     Active Substance: FELIS CATUS HAIR
     Route: 060
  2. POLLENS - WEEDS AND GARDEN PLANTS, COCKLEBUR XANTHIUM STRUMARIUM [Suspect]
     Active Substance: XANTHIUM STRUMARIUM POLLEN
     Route: 060
  3. INSECTS (WHOLE BODY) COCKROACH, AMERICAN PERIPLANETA AMERICANA [Suspect]
     Active Substance: PERIPLANETA AMERICANA
     Route: 060
  4. POLLENS - WEEDS AND GARDEN PLANTS, MARSHELDER, BURWEED (GIANT POVERTY) [Suspect]
     Active Substance: CYCLACHAENA XANTHIFOLIA POLLEN
     Route: 060
  5. ANIMAL ALLERGENS, DOG EPITHELIA, CANIS FAMILIARIS [Suspect]
     Active Substance: CANIS LUPUS FAMILIARIS SKIN
     Route: 060
  6. POLLENS - WEEDS AND GARDEN PLANTS, RAGWEED, MIXED AMBROSIA [Suspect]
     Active Substance: AMBROSIA ARTEMISIIFOLIA POLLEN\AMBROSIA TRIFIDA POLLEN
     Indication: RHINITIS ALLERGIC
     Route: 060
  7. STANDARDIZED MITE DERMATOPHAGOIDES FARINAE [Suspect]
     Active Substance: DERMATOPHAGOIDES FARINAE
     Route: 060
  8. POLLENS - TREES, BOX ELDER, ACER NEGUNDO [Suspect]
     Active Substance: ACER NEGUNDO POLLEN
     Route: 060
  9. STERILE DILUENT FOR ALLERGENIC EXTRACT (GLYCERIN) [Suspect]
     Active Substance: GLYCERIN
     Route: 060
  10. STANDARDIZED MITE DERMATOPHAGOIDES PTERONYSSINUS [Suspect]
     Active Substance: DERMATOPHAGOIDES PTERONYSSINUS
     Route: 060

REACTIONS (5)
  - Accidental overdose [Unknown]
  - Cough [Recovered/Resolved]
  - Upper-airway cough syndrome [Recovered/Resolved]
  - Lacrimation increased [Recovered/Resolved]
  - Respiratory tract congestion [Recovered/Resolved]

NARRATIVE: CASE EVENT DATE: 20170619
